FAERS Safety Report 24657786 (Version 1)
Quarter: 2024Q4

REPORT INFORMATION
  Report Type: Spontaneous
  Country: US (occurrence: US)
  Receive Date: 20241125
  Receipt Date: 20241125
  Transmission Date: 20250114
  Serious: No
  Sender: DR REDDYS
  Company Number: US-drreddys-SPO/USA/23/0182876

PATIENT
  Age: 18 Year
  Sex: Female

DRUGS (1)
  1. ZENATANE [Suspect]
     Active Substance: ISOTRETINOIN
     Indication: Product used for unknown indication
     Dosage: RMA ISSUE DATE: 04 OCTOBER 2023 11:05:39 AM
     Route: 065

REACTIONS (2)
  - Abdominal discomfort [Unknown]
  - Product use issue [Unknown]
